FAERS Safety Report 23070821 (Version 5)
Quarter: 2025Q1

REPORT INFORMATION
  Report Type: Spontaneous
  Country: US (occurrence: US)
  Receive Date: 20231016
  Receipt Date: 20250213
  Transmission Date: 20250409
  Serious: No
  Sender: PFIZER
  Company Number: US-PFIZER INC-PV202300164551

PATIENT
  Age: 52 Year
  Sex: Female
  Weight: 96.52 kg

DRUGS (9)
  1. IBRANCE [Suspect]
     Active Substance: PALBOCICLIB
     Indication: Breast cancer metastatic
     Route: 048
  2. IBRANCE [Suspect]
     Active Substance: PALBOCICLIB
     Indication: Metastases to spine
  3. IBRANCE [Suspect]
     Active Substance: PALBOCICLIB
     Indication: Metastases to liver
  4. ANASTROZOLE [Concomitant]
     Active Substance: ANASTROZOLE
     Indication: Breast cancer metastatic
  5. ANASTROZOLE [Concomitant]
     Active Substance: ANASTROZOLE
     Indication: Metastases to spine
  6. ANASTROZOLE [Concomitant]
     Active Substance: ANASTROZOLE
     Indication: Metastases to liver
  7. GOSERELIN [Concomitant]
     Active Substance: GOSERELIN
     Indication: Breast cancer metastatic
  8. GOSERELIN [Concomitant]
     Active Substance: GOSERELIN
     Indication: Metastases to spine
  9. GOSERELIN [Concomitant]
     Active Substance: GOSERELIN
     Indication: Metastases to liver

REACTIONS (1)
  - Brain fog [Unknown]
